FAERS Safety Report 5091992-9 (Version None)
Quarter: 2006Q3

REPORT INFORMATION
  Report Type: 
  Country: None (occurrence: None)
  Receive Date: 20060824
  Receipt Date: 20060818
  Transmission Date: 20061208
  Serious: Yes (Death)
  Sender: FDA-Public Use
  Company Number: GBWYE746621AUG06

PATIENT
  Sex: Male

DRUGS (1)
  1. EFFEXOR [Suspect]

REACTIONS (1)
  - MYOCARDIAL INFARCTION [None]
